FAERS Safety Report 22138659 (Version 1)
Quarter: 2023Q1

REPORT INFORMATION
  Report Type: Spontaneous
  Country: US (occurrence: US)
  Receive Date: 20230326
  Receipt Date: 20230326
  Transmission Date: 20230418
  Serious: Yes (Other)
  Sender: FDA-Public Use
  Company Number: US-ENDO PHARMACEUTICALS INC-2023-001276

PATIENT
  Age: 39 Year
  Sex: Female

DRUGS (1)
  1. NEOSTIGMINE METHYLSULFATE [Suspect]
     Active Substance: NEOSTIGMINE METHYLSULFATE
     Indication: Product used for unknown indication
     Dosage: UNK UNKNOWN, UNKNOWN
     Route: 065

REACTIONS (4)
  - Stress cardiomyopathy [Recovered/Resolved]
  - Ventricular tachyarrhythmia [Recovered/Resolved]
  - Cardiac arrest [Recovered/Resolved]
  - Maternal exposure during pregnancy [Unknown]
